FAERS Safety Report 8465774 (Version 9)
Quarter: 2013Q2

REPORT INFORMATION
  Report Type: Report from Study
  Country: DE (occurrence: DE)
  Receive Date: 20120319
  Receipt Date: 20130612
  Transmission Date: 20140414
  Serious: Yes (Hospitalization)
  Sender: FDA-Public Use
  Company Number: PHHO2012DE003128

PATIENT
  Age: 59 Year
  Sex: Female
  Weight: 85.5 kg

DRUGS (6)
  1. EVEROLIMUS [Suspect]
     Indication: TUBEROUS SCLEROSIS
     Dosage: 5 MG, QD
     Route: 048
     Dates: start: 20110927, end: 20111128
  2. EVEROLIMUS [Suspect]
     Dosage: 5 MG, QD
     Route: 048
     Dates: end: 20120711
  3. EVEROLIMUS [Suspect]
     Dosage: 5 MG, QD
     Route: 048
     Dates: start: 20120826
  4. BLINDED AFINITOR [Suspect]
     Indication: TUBEROUS SCLEROSIS
     Dosage: DOUBLE BLINDED
     Route: 048
     Dates: start: 20101213, end: 20110909
  5. BLINDED NO TREATMENT RECEIVED [Suspect]
     Indication: TUBEROUS SCLEROSIS
     Dosage: DOUBLE BLINDED
     Route: 048
     Dates: start: 20101213, end: 20110909
  6. BLINDED PLACEBO [Suspect]
     Indication: TUBEROUS SCLEROSIS
     Dosage: DOUBLE BLINDED
     Route: 048
     Dates: start: 20101213, end: 20110909

REACTIONS (1)
  - Erysipelas [Recovered/Resolved]
